FAERS Safety Report 25986265 (Version 5)
Quarter: 2025Q4

REPORT INFORMATION
  Report Type: Spontaneous
  Country: US (occurrence: US)
  Receive Date: 20251031
  Receipt Date: 20251125
  Transmission Date: 20260118
  Serious: Yes (Death, Hospitalization)
  Sender: NOVARTIS
  Company Number: US-002147023-NVSC2025US167996

PATIENT
  Age: 60 Year
  Sex: Male
  Weight: 66.1 kg

DRUGS (1)
  1. PLUVICTO [Suspect]
     Active Substance: LUTETIUM LU-177 VIPIVOTIDE TETRAXETAN
     Indication: Prostate cancer metastatic
     Dosage: 198.92 ML, ONCE/SINGLE
     Route: 042
     Dates: start: 20250903, end: 20250903

REACTIONS (3)
  - General physical health deterioration [Fatal]
  - Urosepsis [Fatal]
  - Cardiac failure [Fatal]

NARRATIVE: CASE EVENT DATE: 20251109
